FAERS Safety Report 7737807-9 (Version None)
Quarter: 2011Q3

REPORT INFORMATION
  Report Type: 
  Country: None (occurrence: None)
  Receive Date: 20110908
  Receipt Date: 20110826
  Transmission Date: 20111222
  Serious: Yes (Other)
  Sender: FDA-Public Use
  Company Number: PHHY2011JP60691

PATIENT
  Age: 46 Year
  Sex: Male

DRUGS (3)
  1. NEORAL [Suspect]
     Indication: APLASIA PURE RED CELL
     Dosage: 200 MG, DAILY
     Route: 048
  2. PREDNISOLONE [Concomitant]
     Dosage: 10 MG, UNK
  3. PREDNISOLONE [Concomitant]
     Dosage: 40 MG, UNK

REACTIONS (6)
  - PYREXIA [None]
  - VISION BLURRED [None]
  - DEEP VEIN THROMBOSIS [None]
  - RETICULOCYTE COUNT INCREASED [None]
  - RETINAL VEIN OCCLUSION [None]
  - ANAEMIA [None]
